FAERS Safety Report 26007092 (Version 1)
Quarter: 2025Q4

REPORT INFORMATION
  Report Type: Report from Study
  Country: US (occurrence: US)
  Receive Date: 20251106
  Receipt Date: 20251106
  Transmission Date: 20260117
  Serious: Yes (Hospitalization, Other)
  Sender: VERTEX
  Company Number: US-VERTEX PHARMACEUTICALS-2025-018352

PATIENT
  Age: 76 Year
  Sex: Male

DRUGS (11)
  1. SYMDEKO [Suspect]
     Active Substance: IVACAFTOR\TEZACAFTOR
     Indication: Cystic fibrosis
     Dosage: 1 TABLET (100MG TEZACAFTOR/150MG IVACAFTOR) IN MORNING, 1 TABLET (150MG IVACAFTOR) IN EVENING, BID
     Route: 048
     Dates: start: 20250403
  2. ASPIRIN [Concomitant]
     Active Substance: ASPIRIN
     Dosage: 81 MG, LOW DOSE TABLETS
  3. ACETYLCYSTEINE [Concomitant]
     Active Substance: ACETYLCYSTEINE
     Dosage: 20 %, INHALATION SOLUTION, 3 X 10 ML
  4. ALBUTEROL [Concomitant]
     Active Substance: ALBUTEROL
     Dosage: 0.083 % (2.5 MG/3 ML) 25 X 3 ML
  5. DUPIXENT [Concomitant]
     Active Substance: DUPILUMAB
     Dosage: 300/ 2 ML INJ PREFLD SYRUP
  6. ZETIA [Concomitant]
     Active Substance: EZETIMIBE
     Dosage: 10 MG TABLET
  7. FERROUS SULFATE [Concomitant]
     Active Substance: FERROUS SULFATE
     Dosage: 325 MG (5 GR) TABLETS
  8. PRAVASTATIN [Concomitant]
     Active Substance: PRAVASTATIN
     Dosage: 40 MG TABLETS
  9. DUONEB [Concomitant]
     Active Substance: ALBUTEROL SULFATE\IPRATROPIUM BROMIDE
     Dosage: INHALATION SOLUTION, 3 ML
  10. MAGNESIUM [Concomitant]
     Active Substance: MAGNESIUM
     Dosage: 400 MG, CAPSULES
  11. PULMOZYME [Concomitant]
     Active Substance: DORNASE ALFA
     Dosage: 1 MG/ ML INHALATION SOLUTION, 30 X 2.5 ML

REACTIONS (4)
  - Infection [Not Recovered/Not Resolved]
  - Insomnia [Not Recovered/Not Resolved]
  - Fatigue [Not Recovered/Not Resolved]
  - Respiratory disorder [Recovering/Resolving]

NARRATIVE: CASE EVENT DATE: 20251001
